FAERS Safety Report 4472904-5 (Version None)
Quarter: 2004Q4

REPORT INFORMATION
  Report Type: 
  Country: None (occurrence: None)
  Receive Date: 20041012
  Receipt Date: 20041012
  Transmission Date: 20050328
  Serious: Yes (Hospitalization)
  Sender: FDA-Public Use
  Company Number: None

PATIENT
  Age: 78 Year
  Sex: Male
  Weight: 65.2 kg

DRUGS (1)
  1. LINEZOLID [Suspect]
     Indication: GLYCOPEPTIDE ANTIBIOTIC RESISTANT ENTEROCOCCAL INFECTION
     Dosage: 1200MG, 600MGQ12, ORAL
     Route: 048
     Dates: start: 20040805, end: 20040819

REACTIONS (1)
  - THROMBOCYTOPENIA [None]
